FAERS Safety Report 24887766 (Version 1)
Quarter: 2025Q1

REPORT INFORMATION
  Report Type: Report from Study
  Country: US (occurrence: US)
  Receive Date: 20250127
  Receipt Date: 20250127
  Transmission Date: 20250409
  Serious: Yes (Other)
  Sender: AUROBINDO
  Company Number: US-AUROBINDO-AUR-APL-2025-003509

PATIENT
  Age: 57 Year
  Sex: Female

DRUGS (3)
  1. VERAPAMIL HYDROCHLORIDE [Suspect]
     Active Substance: VERAPAMIL HYDROCHLORIDE
     Indication: Hypertrophic cardiomyopathy
     Dosage: 240 MILLIGRAM, TWO TIMES A DAY
     Route: 065
  2. MAVACAMTEN [Suspect]
     Active Substance: MAVACAMTEN
     Indication: Hypertrophic cardiomyopathy
     Dosage: 5 MILLIGRAM, ONCE A DAY
     Route: 065
  3. DISOPYRAMIDE [Suspect]
     Active Substance: DISOPYRAMIDE
     Indication: Hypertrophic cardiomyopathy
     Dosage: 100 MILLIGRAM, TWO TIMES A DAY
     Route: 065

REACTIONS (1)
  - Drug ineffective [Unknown]
